FAERS Safety Report 8302953-8 (Version None)
Quarter: 2012Q2

REPORT INFORMATION
  Report Type: 
  Country: None (occurrence: None)
  Receive Date: 20120420
  Receipt Date: 20120405
  Transmission Date: 20120825
  Serious: Yes (Death)
  Sender: FDA-Public Use
  Company Number: PHHY2012CN031337

PATIENT

DRUGS (13)
  1. SIMULECT [Suspect]
     Dosage: 20 MG, 4 DAYS AFTER SURGERY
     Route: 042
  2. PREDNISONE TAB [Concomitant]
     Indication: RENAL TRANSPLANT
     Dosage: 30 MG/D
  3. SIMULECT [Suspect]
     Indication: RENAL TRANSPLANT
     Dosage: 20 MG, WITHIN 2 HOURS OF SURGERY
     Route: 042
  4. METHYLPREDNISOLONE [Concomitant]
     Dosage: 240 MG/D ON DAY 4
     Route: 042
  5. MYCOPHENOLATE MOFETIL [Suspect]
     Indication: RENAL TRANSPLANT
     Route: 048
  6. PREDNISONE TAB [Concomitant]
     Dosage: 10-15 MG/D FOR THE SECOND TRIMESTER
  7. METHYLPREDNISOLONE [Concomitant]
     Dosage: 160 MG/D ON DAY 5
     Route: 042
  8. METHYLPREDNISOLONE [Concomitant]
     Dosage: 80 MG/D ON DAY 6 AND ON DAYS 7 THROUGH 14
     Route: 042
  9. NEORAL [Suspect]
     Indication: RENAL TRANSPLANT
     Dosage: 6.5 MG/KG, UNK
  10. PREDNISONE TAB [Concomitant]
     Dosage: 5-10 MG/D FOR THE THIRD TRIMESTER AND BEYOND
  11. TACROLIMUS [Suspect]
     Indication: RENAL TRANSPLANT
     Dosage: 0.12 MG/KG, UNK
  12. METHYLPREDNISOLONE [Concomitant]
     Indication: RENAL TRANSPLANT
     Dosage: 6 MG/KG, MMEDIATELY AFTER SURGERY AND THROUGH DAY 3
     Route: 042
  13. PREDNISONE TAB [Concomitant]
     Dosage: 20 MG, FOR THE FIRST TRIMESTER

REACTIONS (1)
  - PNEUMONIA [None]
